FAERS Safety Report 11337061 (Version 3)
Quarter: 2015Q3

REPORT INFORMATION
  Report Type: Report from Study
  Country: GB (occurrence: GB)
  Receive Date: 20150804
  Receipt Date: 20150814
  Transmission Date: 20151125
  Serious: Yes (Hospitalization)
  Sender: FDA-Public Use
  Company Number: GB-B.I. PHARMACEUTICALS,INC./RIDGEFIELD-2015-BI-41143BI

PATIENT
  Age: 67 Year
  Sex: Male
  Weight: 81.5 kg

DRUGS (4)
  1. BIBW 2992 [Suspect]
     Active Substance: AFATINIB
     Indication: GLIOBLASTOMA MULTIFORME
     Dosage: 40 MG
     Route: 048
     Dates: start: 20110321
  2. SODIUM VALPROATE [Concomitant]
     Active Substance: VALPROATE SODIUM
     Indication: PROPHYLAXIS
     Dosage: 1400 MG
     Route: 048
     Dates: start: 20110601
  3. LEVETIRACETAM. [Concomitant]
     Active Substance: LEVETIRACETAM
     Indication: PROPHYLAXIS
     Dosage: 1125 MG
     Route: 048
     Dates: start: 20120412
  4. LOPERAMIDE [Concomitant]
     Active Substance: LOPERAMIDE
     Indication: DIARRHOEA
     Dosage: DOSE PER APPLICATION: 2-16 AND DAILY DOSE: 2-16 PRN.
     Route: 048

REACTIONS (1)
  - Seizure [Recovered/Resolved]

NARRATIVE: CASE EVENT DATE: 20150702
